FAERS Safety Report 15486314 (Version 6)
Quarter: 2018Q4

REPORT INFORMATION
  Report Type: Report from Study
  Country: US (occurrence: US)
  Receive Date: 20181011
  Receipt Date: 20181204
  Transmission Date: 20190205
  Serious: Yes (Life-Threatening, Hospitalization)
  Sender: FDA-Public Use
  Company Number: US-ROCHE-2140033

PATIENT
  Age: 58 Year
  Sex: Female
  Weight: 64.8 kg

DRUGS (134)
  1. TYLENOL [Concomitant]
     Active Substance: ACETAMINOPHEN
     Dosage: SUBSEQUENT DOSE RECEIVED ON: 20/NOV/2012, 03/MAY/2013, 10/APR/2014, 01/OCT/2014, 18/MAR/2015, 13/AUG
     Route: 065
     Dates: start: 20121107
  2. FELODIPINE. [Concomitant]
     Active Substance: FELODIPINE
     Indication: HYPERTENSION
     Route: 065
     Dates: start: 20100628
  3. ACETAMINOPHEN. [Concomitant]
     Active Substance: ACETAMINOPHEN
     Indication: PYREXIA
     Route: 065
     Dates: start: 20180523, end: 20180523
  4. ENOXAPARIN [Concomitant]
     Active Substance: ENOXAPARIN
     Dosage: DEEP VEIN THROMBOSIS PROPHYLAXIS
     Route: 065
     Dates: start: 20180617, end: 20180703
  5. FAMOTIDINE. [Concomitant]
     Active Substance: FAMOTIDINE
     Route: 065
     Dates: start: 20180529, end: 20180614
  6. INSULIN ASPART [Concomitant]
     Active Substance: INSULIN ASPART
     Dosage: 2 UNITS
     Route: 065
     Dates: start: 20180601, end: 20180613
  7. METOPROLOL TARTRATE. [Concomitant]
     Active Substance: METOPROLOL TARTRATE
     Route: 065
     Dates: start: 20180616, end: 20180703
  8. NOREPINEPHRINE. [Concomitant]
     Active Substance: NOREPINEPHRINE
     Indication: HYPOTENSION
     Route: 065
     Dates: start: 20180526, end: 20180530
  9. SODIUM CHLORIDE. [Concomitant]
     Active Substance: SODIUM CHLORIDE
     Route: 065
     Dates: start: 20180526, end: 20180527
  10. SODIUM CHLORIDE. [Concomitant]
     Active Substance: SODIUM CHLORIDE
     Route: 065
     Dates: start: 20180529, end: 20180529
  11. SODIUM PHOSPHATE [Concomitant]
     Active Substance: SODIUM PHOSPHATE
     Dosage: DOSE: 15 OTHER, UNKNOWN, 30 OTHER, UNKNOWN AND 45 OTHER, UNKNOWN
     Route: 065
     Dates: start: 20180613, end: 20180613
  12. MORPHINE SULFATE. [Concomitant]
     Active Substance: MORPHINE SULFATE
     Route: 065
     Dates: start: 20180628, end: 20180703
  13. VANCOMYCIN [Concomitant]
     Active Substance: VANCOMYCIN
     Route: 065
     Dates: start: 20180616, end: 20180617
  14. HEPARIN [Concomitant]
     Active Substance: HEPARIN SODIUM
     Indication: DEEP VEIN THROMBOSIS
     Dosage: 15000UNIT
     Route: 065
     Dates: start: 20180614, end: 20180615
  15. CEFAZOLIN [Concomitant]
     Active Substance: CEFAZOLIN
     Dosage: LEFT BREAST ABSCESS
     Route: 065
     Dates: start: 20180614, end: 20180614
  16. PLACEBO [Suspect]
     Active Substance: UNSPECIFIED INGREDIENT
     Indication: PRIMARY PROGRESSIVE MULTIPLE SCLEROSIS
     Dosage: SUBSEQUENT DOSE RECEIVED ON: 20/NOV/2012, 03/MAY/2013, 10/APR/2014, 01/OCT/2014, 18/MAR/2015, 13/AUG
     Route: 042
     Dates: start: 20121107, end: 20160210
  17. BUPROPION. [Concomitant]
     Active Substance: BUPROPION
     Indication: DEPRESSION
     Route: 065
     Dates: start: 200604
  18. FAMOTIDINE. [Concomitant]
     Active Substance: FAMOTIDINE
     Indication: INVASIVE DUCTAL BREAST CARCINOMA
     Route: 065
     Dates: start: 20171010, end: 20171121
  19. FAMOTIDINE. [Concomitant]
     Active Substance: FAMOTIDINE
     Dosage: PREOPERATIVE DEBRIDEMENT
     Route: 065
     Dates: start: 20180617, end: 20180617
  20. NORTRIPTYLINE [Concomitant]
     Active Substance: NORTRIPTYLINE
     Indication: DEPRESSION
     Route: 065
     Dates: start: 20110815
  21. ALBUMIN HUMAN [Concomitant]
     Active Substance: ALBUMIN HUMAN
     Route: 065
     Dates: start: 20180530, end: 20180530
  22. AMLOPINE [Concomitant]
     Active Substance: AMLODIPINE BESYLATE
     Indication: HYPERTENSION
     Route: 065
     Dates: start: 20180602, end: 20180602
  23. FAMOTIDINE. [Concomitant]
     Active Substance: FAMOTIDINE
     Dosage: NAUSEA PROPHYLAXIS
     Route: 065
     Dates: start: 20180529, end: 20180614
  24. MAGNESIUM SULFATE. [Concomitant]
     Active Substance: MAGNESIUM SULFATE
     Route: 065
     Dates: start: 20180530, end: 20180613
  25. MIDAZOLAM [Concomitant]
     Active Substance: MIDAZOLAM HYDROCHLORIDE
     Indication: SEDATIVE THERAPY
     Dosage: 2 MG, 10 MG,
     Route: 065
     Dates: start: 20180528, end: 20180528
  26. NORMODYNE [Concomitant]
     Active Substance: LABETALOL HYDROCHLORIDE
     Indication: HYPOTENSION
     Route: 065
     Dates: start: 20180526, end: 20180605
  27. SODIUM CHLORIDE. [Concomitant]
     Active Substance: SODIUM CHLORIDE
     Route: 065
     Dates: start: 20180530, end: 20180530
  28. SODIUM CHLORIDE. [Concomitant]
     Active Substance: SODIUM CHLORIDE
     Route: 065
     Dates: start: 20180613, end: 20180613
  29. DEXTROSE. [Concomitant]
     Active Substance: DEXTROSE
     Route: 065
     Dates: start: 20180615, end: 20180703
  30. DEXTROSE. [Concomitant]
     Active Substance: DEXTROSE
     Route: 065
     Dates: start: 20180615, end: 20180615
  31. VANCOMYCIN [Concomitant]
     Active Substance: VANCOMYCIN
     Route: 065
     Dates: start: 20180620, end: 20180629
  32. POLYETHYLENE GLYCOL [Concomitant]
     Active Substance: POLYETHYLENE GLYCOLS
     Indication: CONSTIPATION
     Route: 065
     Dates: start: 20180622, end: 20180703
  33. METOCLOPRAMIDE. [Concomitant]
     Active Substance: METOCLOPRAMIDE
     Route: 065
     Dates: start: 20180619, end: 20180619
  34. LACTATED RINGERS SOLUTION [Concomitant]
     Active Substance: CALCIUM CHLORIDE\POTASSIUM CHLORIDE\SODIUM CHLORIDE\SODIUM LACTATE
     Dosage: FOR PREOPERATIVE DEBRIDEMENT
     Route: 065
     Dates: start: 20180614, end: 20180614
  35. LACTATED RINGERS SOLUTION [Concomitant]
     Active Substance: CALCIUM CHLORIDE\POTASSIUM CHLORIDE\SODIUM CHLORIDE\SODIUM LACTATE
     Dosage: FOR LEFT BREAST ABSCESS
     Route: 065
     Dates: start: 20180617, end: 20180622
  36. DOXYCYCLINE MONOHYDRATE [Concomitant]
     Active Substance: DOXYCYCLINE
     Indication: BREAST ABSCESS
     Route: 065
     Dates: start: 20180629, end: 20180705
  37. BUPIVACAINE HCL [Concomitant]
     Active Substance: BUPIVACAINE HYDROCHLORIDE
     Route: 065
     Dates: start: 20180618, end: 20180618
  38. BENADRYL [Concomitant]
     Active Substance: DIPHENHYDRAMINE HYDROCHLORIDE
     Dosage: SUBSEQUENT DOSE RECEIVED ON: 20/NOV/2012, 03/MAY/2013, 10/APR/2014, 01/OCT/2014, 18/MAR/2015, 13/AUG
     Route: 065
     Dates: start: 20121107
  39. ACETAMINOPHEN. [Concomitant]
     Active Substance: ACETAMINOPHEN
     Route: 065
     Dates: start: 20180523, end: 20180526
  40. ALBUMIN HUMAN [Concomitant]
     Active Substance: ALBUMIN HUMAN
     Indication: OEDEMA
     Dosage: EDEMA PROPHYLAXIS
     Route: 065
     Dates: start: 20180605, end: 20180605
  41. CISATRACURIUM. [Concomitant]
     Active Substance: CISATRACURIUM
     Indication: ENDOTRACHEAL INTUBATION
     Route: 065
     Dates: start: 20180529, end: 20180531
  42. ENOXAPARIN [Concomitant]
     Active Substance: ENOXAPARIN
     Dosage: ACUTE DEEP VEIN THROMBOSIS PROPHYLAXIS
     Route: 065
     Dates: start: 20180523, end: 20180613
  43. MEROPENEM. [Concomitant]
     Active Substance: MEROPENEM
     Indication: PNEUMONIA
     Route: 065
     Dates: start: 20180531, end: 20180609
  44. METOPROLOL TARTRATE. [Concomitant]
     Active Substance: METOPROLOL TARTRATE
     Route: 065
     Dates: start: 20180616, end: 20180703
  45. MIDAZOLAM [Concomitant]
     Active Substance: MIDAZOLAM HYDROCHLORIDE
     Route: 065
     Dates: start: 20180618, end: 20180618
  46. MORPHINE [Concomitant]
     Active Substance: MORPHINE
     Route: 065
     Dates: start: 20180525, end: 20180528
  47. ONDANSETRON [Concomitant]
     Active Substance: ONDANSETRON
     Indication: NAUSEA
     Route: 065
     Dates: start: 20180523, end: 20180523
  48. SODIUM CHLORIDE. [Concomitant]
     Active Substance: SODIUM CHLORIDE
     Dosage: 250 ML
     Route: 065
     Dates: start: 20180613, end: 20180613
  49. METOCLOPRAMIDE. [Concomitant]
     Active Substance: METOCLOPRAMIDE
     Route: 065
     Dates: start: 20180626, end: 20180626
  50. FENTANYL CITRATE. [Concomitant]
     Active Substance: FENTANYL CITRATE
     Dosage: ABSCESS DEBRIDEMENT
     Route: 065
     Dates: start: 20180614, end: 20180626
  51. CEFEPIME [Concomitant]
     Active Substance: CEFEPIME HYDROCHLORIDE
     Indication: BREAST ABSCESS
     Route: 065
     Dates: start: 20180621, end: 20180627
  52. METHYLPREDNISOLONE. [Concomitant]
     Active Substance: METHYLPREDNISOLONE
     Dosage: SUBSEQUENT DOSE RECEIVED ON: 20/NOV/2012, 03/MAY/2013, 10/APR/2014, 01/OCT/2014, 18/MAR/2015, 13/AUG
     Route: 065
     Dates: start: 20121107
  53. BENADRYL [Concomitant]
     Active Substance: DIPHENHYDRAMINE HYDROCHLORIDE
     Indication: DERMATITIS CONTACT
     Route: 065
     Dates: start: 20150725, end: 20150801
  54. DIGOXIN. [Concomitant]
     Active Substance: DIGOXIN
     Indication: ATRIAL FIBRILLATION
     Route: 065
     Dates: start: 20180529, end: 20180529
  55. MORPHINE [Concomitant]
     Active Substance: MORPHINE
     Indication: PAIN
     Route: 065
     Dates: start: 20180523, end: 20180523
  56. OMNIPAQUE [Concomitant]
     Active Substance: IOHEXOL
     Route: 065
     Dates: start: 20180531, end: 20180531
  57. SODIUM CHLORIDE. [Concomitant]
     Active Substance: SODIUM CHLORIDE
     Route: 065
     Dates: start: 20180524, end: 20180524
  58. BUSPIRONE [Concomitant]
     Active Substance: BUSPIRONE HYDROCHLORIDE
     Indication: DEPRESSION
     Route: 065
     Dates: start: 20180526, end: 20180613
  59. DEXTROSE. [Concomitant]
     Active Substance: DEXTROSE
     Route: 065
     Dates: start: 20180615, end: 20180618
  60. LIDOCAINE. [Concomitant]
     Active Substance: LIDOCAINE
     Route: 065
     Dates: start: 20180608, end: 20180608
  61. NORCO [Concomitant]
     Active Substance: ACETAMINOPHEN\HYDROCODONE BITARTRATE
     Route: 065
     Dates: start: 20140623, end: 20140701
  62. GLUCOSE [Concomitant]
     Active Substance: DEXTROSE
     Route: 065
     Dates: start: 20180615, end: 20180703
  63. CEFAZOLIN [Concomitant]
     Active Substance: CEFAZOLIN
     Indication: BREAST ABSCESS
     Dosage: LATERAL MENISCAL TEAR
     Route: 065
     Dates: start: 20151214, end: 20151214
  64. BISACODYL. [Concomitant]
     Active Substance: BISACODYL
     Indication: CONSTIPATION
     Route: 065
     Dates: start: 20180623, end: 20180703
  65. DEXAMETHASONE SODIUM PHOSPHATE. [Concomitant]
     Active Substance: DEXAMETHASONE SODIUM PHOSPHATE
     Indication: INVASIVE DUCTAL BREAST CARCINOMA
     Route: 065
     Dates: start: 20170815, end: 20171121
  66. GABAPENTIN. [Concomitant]
     Active Substance: GABAPENTIN
     Route: 065
     Dates: start: 20061208
  67. ACETAMINOPHEN. [Concomitant]
     Active Substance: ACETAMINOPHEN
     Route: 065
     Dates: start: 20180526, end: 20180528
  68. ACETAMINOPHEN. [Concomitant]
     Active Substance: ACETAMINOPHEN
     Route: 065
     Dates: start: 20180528, end: 20180529
  69. AMLOPINE [Concomitant]
     Active Substance: AMLODIPINE BESYLATE
     Route: 065
     Dates: start: 20180603, end: 20180611
  70. CEFTAROLINE [Concomitant]
     Active Substance: CEFTAROLINE
     Indication: PNEUMONIA
     Route: 065
     Dates: start: 20180608, end: 20180609
  71. FENTANYL. [Concomitant]
     Active Substance: FENTANYL
     Indication: SEDATIVE THERAPY
     Route: 065
     Dates: start: 20180528, end: 20180606
  72. FENTANYL. [Concomitant]
     Active Substance: FENTANYL
     Indication: PAIN MANAGEMENT
     Route: 065
     Dates: start: 20180528, end: 20180602
  73. HYDRALAZINE [Concomitant]
     Active Substance: HYDRALAZINE HYDROCHLORIDE
     Indication: HYPERTENSION
     Route: 065
     Dates: start: 20180602, end: 20180614
  74. MEROPENEM. [Concomitant]
     Active Substance: MEROPENEM
     Route: 065
     Dates: start: 20180615, end: 20180615
  75. METOPROLOL TARTRATE. [Concomitant]
     Active Substance: METOPROLOL TARTRATE
     Indication: HYPERTENSION
     Route: 065
     Dates: start: 20180611, end: 20180614
  76. OXYCODONE IR [Concomitant]
     Active Substance: OXYCODONE
     Route: 065
     Dates: start: 20180529, end: 20180531
  77. SENNA/DOCUSATE SODIUM [Concomitant]
     Active Substance: DOCUSATE SODIUM\SENNOSIDES
     Indication: CONSTIPATION PROPHYLAXIS
     Route: 065
     Dates: start: 20180523, end: 20180612
  78. NORCO [Concomitant]
     Active Substance: ACETAMINOPHEN\HYDROCODONE BITARTRATE
     Route: 065
     Dates: start: 20180617, end: 20180617
  79. BACLOFEN. [Concomitant]
     Active Substance: BACLOFEN
     Route: 065
     Dates: start: 20060920, end: 201412
  80. FAMOTIDINE. [Concomitant]
     Active Substance: FAMOTIDINE
     Dosage: GASTRIC UPSET PROPHYLAXIS
     Route: 065
     Dates: start: 20180615, end: 20180622
  81. HYDROMORPHONE [Concomitant]
     Active Substance: HYDROMORPHONE
     Indication: WRIST FRACTURE
     Route: 065
     Dates: start: 20130920, end: 20130920
  82. ACETAMINOPHEN. [Concomitant]
     Active Substance: ACETAMINOPHEN
     Route: 065
     Dates: start: 20180625, end: 20180627
  83. AMIODARONE [Concomitant]
     Active Substance: AMIODARONE
     Indication: ATRIAL FIBRILLATION
     Route: 065
     Dates: start: 20180529, end: 20180529
  84. CALCIUM CARBONATE. [Concomitant]
     Active Substance: CALCIUM CARBONATE
     Route: 065
     Dates: start: 20180525, end: 20180613
  85. CHLORHEXIDINE [Concomitant]
     Active Substance: CHLORHEXIDINE
     Route: 065
     Dates: start: 20180610, end: 20180610
  86. FAMOTIDINE. [Concomitant]
     Active Substance: FAMOTIDINE
     Dosage: PRE OPERATIVE DEBRIDEMENT
     Route: 065
     Dates: start: 20180626, end: 20180626
  87. HYDRALAZINE [Concomitant]
     Active Substance: HYDRALAZINE HYDROCHLORIDE
     Route: 065
     Dates: start: 20180616, end: 20180703
  88. MIDAZOLAM [Concomitant]
     Active Substance: MIDAZOLAM HYDROCHLORIDE
     Route: 065
     Dates: start: 20180526, end: 20180526
  89. NAPROXEN. [Concomitant]
     Active Substance: NAPROXEN
     Indication: PAIN
     Route: 065
     Dates: start: 20180610
  90. ONDANSETRON [Concomitant]
     Active Substance: ONDANSETRON
     Route: 065
     Dates: start: 20180624, end: 20180703
  91. PROPOFOL. [Concomitant]
     Active Substance: PROPOFOL
     Route: 065
     Dates: start: 20180613, end: 20180614
  92. SODIUM CHLORIDE. [Concomitant]
     Active Substance: SODIUM CHLORIDE
     Route: 065
     Dates: start: 20180523, end: 20180523
  93. SODIUM CHLORIDE. [Concomitant]
     Active Substance: SODIUM CHLORIDE
     Route: 065
     Dates: start: 20180614, end: 20180614
  94. MORPHINE SULFATE. [Concomitant]
     Active Substance: MORPHINE SULFATE
     Route: 065
     Dates: start: 20180618, end: 20180624
  95. VANCOMYCIN [Concomitant]
     Active Substance: VANCOMYCIN
     Route: 065
     Dates: start: 20180618, end: 20180620
  96. PHENOL. [Concomitant]
     Active Substance: PHENOL
     Dosage: ORAL CARE: 5 SPRAYS
     Route: 048
     Dates: start: 20180614, end: 20180703
  97. FENTANYL CITRATE. [Concomitant]
     Active Substance: FENTANYL CITRATE
     Route: 065
     Dates: start: 20151214, end: 20151214
  98. OCRELIZUMAB. [Suspect]
     Active Substance: OCRELIZUMAB
     Indication: PRIMARY PROGRESSIVE MULTIPLE SCLEROSIS
     Dosage: TWO IV INFUSIONS OF OCRELIZUMAB 300 MG SEPARATED BY 14 DAYS FOR CYCLE 1 AND SINGLE IV INFUSION OF OC
     Route: 042
     Dates: start: 20160211
  99. FAMOTIDINE. [Concomitant]
     Active Substance: FAMOTIDINE
     Route: 065
     Dates: start: 20151214, end: 20151214
  100. CALCIUM GLUCONATE. [Concomitant]
     Active Substance: CALCIUM GLUCONATE
     Route: 065
     Dates: start: 20180524, end: 20180613
  101. FENTANYL. [Concomitant]
     Active Substance: FENTANYL
     Route: 065
     Dates: start: 20180602, end: 20180606
  102. FUROSEMIDE. [Concomitant]
     Active Substance: FUROSEMIDE
     Route: 065
     Dates: start: 20180611, end: 20180611
  103. FUROSEMIDE. [Concomitant]
     Active Substance: FUROSEMIDE
     Route: 065
     Dates: start: 20180527, end: 20180605
  104. LUBIPROSTONE [Concomitant]
     Active Substance: LUBIPROSTONE
     Indication: CONSTIPATION PROPHYLAXIS
     Route: 065
     Dates: start: 20180524, end: 20180605
  105. NORMODYNE [Concomitant]
     Active Substance: LABETALOL HYDROCHLORIDE
     Indication: URINARY TRACT INFECTION
     Route: 065
     Dates: start: 20180610, end: 20180614
  106. MEROPENEM. [Concomitant]
     Active Substance: MEROPENEM
     Route: 065
     Dates: start: 20180531, end: 20180609
  107. MIDAZOLAM [Concomitant]
     Active Substance: MIDAZOLAM HYDROCHLORIDE
     Indication: BREAST ABSCESS
     Route: 065
     Dates: start: 20180529, end: 20180529
  108. OXYCODONE IR [Concomitant]
     Active Substance: OXYCODONE
     Indication: PAIN
     Route: 065
     Dates: start: 20180524, end: 20180614
  109. PHENYLEPHRINE [Concomitant]
     Active Substance: PHENYLEPHRINE\PHENYLEPHRINE HYDROCHLORIDE
     Indication: HYPOTENSION
     Route: 065
     Dates: start: 20180529, end: 20180531
  110. PROPOFOL. [Concomitant]
     Active Substance: PROPOFOL
     Indication: SEDATIVE THERAPY
     Dosage: 30 MG, 50 MG
     Route: 065
     Dates: start: 20180528, end: 20180528
  111. SODIUM CHLORIDE. [Concomitant]
     Active Substance: SODIUM CHLORIDE
     Route: 065
     Dates: start: 20180526, end: 20180614
  112. SODIUM CHLORIDE. [Concomitant]
     Active Substance: SODIUM CHLORIDE
     Route: 065
     Dates: start: 20180613, end: 20180613
  113. VASOPRESSIN. [Concomitant]
     Active Substance: VASOPRESSIN
     Indication: SEPTIC SHOCK
     Route: 065
     Dates: start: 20180529, end: 20180529
  114. MORPHINE SULFATE. [Concomitant]
     Active Substance: MORPHINE SULFATE
     Indication: BREAST ABSCESS
     Route: 065
     Dates: start: 20151214, end: 20151214
  115. NORCO [Concomitant]
     Active Substance: ACETAMINOPHEN\HYDROCODONE BITARTRATE
     Indication: WRIST FRACTURE
     Route: 065
     Dates: start: 20130920, end: 20130920
  116. VANCOMYCIN [Concomitant]
     Active Substance: VANCOMYCIN
     Indication: BREAST ABSCESS
     Route: 065
     Dates: start: 20180615, end: 20180615
  117. LACTATED RINGERS SOLUTION [Concomitant]
     Active Substance: CALCIUM CHLORIDE\POTASSIUM CHLORIDE\SODIUM CHLORIDE\SODIUM LACTATE
     Indication: BREAST ABSCESS
     Route: 065
     Dates: start: 20151214, end: 20151214
  118. LACTATED RINGERS SOLUTION [Concomitant]
     Active Substance: CALCIUM CHLORIDE\POTASSIUM CHLORIDE\SODIUM CHLORIDE\SODIUM LACTATE
     Dosage: ABSCESS DEBRIDEMENT
     Route: 065
     Dates: start: 20180625, end: 20180703
  119. METHYLPREDNISOLONE. [Concomitant]
     Active Substance: METHYLPREDNISOLONE
     Dosage: SUBSEQUENT DOSE RECEIVED ON: 20/NOV/2012, 03/MAY/2013, 10/APR/2014, 01/OCT/2014, 18/MAR/2015, 13/AUG
     Route: 065
     Dates: start: 20121107
  120. BACLOFEN. [Concomitant]
     Active Substance: BACLOFEN
     Indication: MUSCLE SPASTICITY
     Route: 065
     Dates: start: 201501
  121. FELODIPINE. [Concomitant]
     Active Substance: FELODIPINE
     Route: 065
     Dates: start: 20180523, end: 20180613
  122. HYDROMORPHONE [Concomitant]
     Active Substance: HYDROMORPHONE
     Indication: PAIN
     Route: 065
     Dates: start: 20180621, end: 20180621
  123. ACETAMINOPHEN. [Concomitant]
     Active Substance: ACETAMINOPHEN
     Route: 065
     Dates: start: 20151214, end: 20151214
  124. AMIODARONE [Concomitant]
     Active Substance: AMIODARONE
     Route: 065
     Dates: start: 20180530, end: 20180531
  125. CHLORHEXIDINE [Concomitant]
     Active Substance: CHLORHEXIDINE
     Indication: ENDOTRACHEAL INTUBATION
     Route: 065
     Dates: start: 20180530, end: 20180614
  126. ENOXAPARIN [Concomitant]
     Active Substance: ENOXAPARIN
     Dosage: DEEP VEIN THROMBOSIS PROPHYLAXIS
     Route: 065
     Dates: start: 20180615, end: 20180616
  127. FUROSEMIDE. [Concomitant]
     Active Substance: FUROSEMIDE
     Route: 065
     Dates: start: 20180616, end: 20180616
  128. METOPROLOL. [Concomitant]
     Active Substance: METOPROLOL
     Indication: HYPERTENSION
     Route: 065
     Dates: start: 20180529, end: 20180610
  129. DEXTROSE. [Concomitant]
     Active Substance: DEXTROSE
     Route: 065
     Dates: start: 20180601, end: 20180601
  130. GADOTERIDOL [Concomitant]
     Active Substance: GADOTERIDOL
     Route: 065
     Dates: start: 20180605, end: 20180605
  131. AMLODIPINE [Concomitant]
     Active Substance: AMLODIPINE BESYLATE
     Indication: HYPERTENSION
     Route: 065
     Dates: start: 20180616, end: 20180703
  132. VANCOMYCIN [Concomitant]
     Active Substance: VANCOMYCIN
     Route: 065
     Dates: start: 20180616, end: 20180616
  133. LACTATED RINGERS SOLUTION [Concomitant]
     Active Substance: CALCIUM CHLORIDE\POTASSIUM CHLORIDE\SODIUM CHLORIDE\SODIUM LACTATE
     Dosage: BLADDER STONES
     Route: 065
     Dates: start: 20140623, end: 20140623
  134. FOLEY CATHETER [Concomitant]
     Indication: NEUROGENIC BLADDER
     Route: 065
     Dates: start: 20180614, end: 20180703

REACTIONS (3)
  - Candida sepsis [Recovered/Resolved]
  - Acute respiratory failure [Recovered/Resolved]
  - Hypoxia [Recovered/Resolved]

NARRATIVE: CASE EVENT DATE: 20180523
